FAERS Safety Report 5022704-2 (Version None)
Quarter: 2006Q2

REPORT INFORMATION
  Report Type: 
  Country: None (occurrence: None)
  Receive Date: 20060605
  Receipt Date: 20060518
  Transmission Date: 20061013
  Serious: Yes (Death)
  Sender: FDA-Public Use
  Company Number: CA200603001551

PATIENT
  Age: 51 Year
  Sex: Male

DRUGS (2)
  1. STRATTERA [Suspect]
     Dosage: `1.8 MG/KG
     Dates: start: 20050701
  2. ALCOHOL (ETHANOL) [Concomitant]

REACTIONS (1)
  - PRESCRIBED OVERDOSE [None]
